FAERS Safety Report 11906662 (Version 1)
Quarter: 2016Q1

REPORT INFORMATION
  Report Type: Spontaneous
  Country: FR (occurrence: FR)
  Receive Date: 20160111
  Receipt Date: 20160111
  Transmission Date: 20160526
  Serious: Yes (Disabling)
  Sender: FDA-Public Use
  Company Number: FR-GLAXOSMITHKLINE-FR2016GSK002032

PATIENT
  Age: 13 Year

DRUGS (5)
  1. RETROVIR [Suspect]
     Active Substance: ZIDOVUDINE
     Dosage: UNK
     Route: 048
     Dates: start: 19980122
  2. EPIVIR [Suspect]
     Active Substance: LAMIVUDINE
     Indication: PROPHYLAXIS AGAINST HIV INFECTION
     Dosage: UNK
     Route: 064
     Dates: start: 19971201, end: 19980122
  3. VIDEX [Concomitant]
     Active Substance: DIDANOSINE
     Indication: HIV INFECTION
     Dosage: UNK
     Route: 064
     Dates: start: 19951201, end: 19970617
  4. RETROVIR [Suspect]
     Active Substance: ZIDOVUDINE
     Indication: PROPHYLAXIS AGAINST HIV INFECTION
     Dosage: UNK
     Route: 064
     Dates: start: 19951030, end: 19980122
  5. EPIVIR [Suspect]
     Active Substance: LAMIVUDINE
     Dosage: 6 MG/KG, BID
     Route: 048
     Dates: start: 19980123

REACTIONS (3)
  - Developmental delay [Recovering/Resolving]
  - Memory impairment [Recovering/Resolving]
  - Foetal exposure during pregnancy [Unknown]

NARRATIVE: CASE EVENT DATE: 201103
